FAERS Safety Report 20619128 (Version 5)
Quarter: 2023Q2

REPORT INFORMATION
  Report Type: Spontaneous
  Country: US (occurrence: US)
  Receive Date: 20220322
  Receipt Date: 20230428
  Transmission Date: 20230722
  Serious: No
  Sender: FDA-Public Use
  Company Number: ENDG22-01580

PATIENT
  Sex: Female

DRUGS (2)
  1. DELESTROGEN [Suspect]
     Active Substance: ESTRADIOL VALERATE
     Indication: Osteoporosis
     Dosage: UNK UNKNOWN, UNKNOWN
     Route: 065
  2. DELESTROGEN [Suspect]
     Active Substance: ESTRADIOL VALERATE
     Dosage: UNK UNKNOWN, UNKNOWN
     Route: 065

REACTIONS (4)
  - Product dose omission issue [Recovered/Resolved]
  - Off label use [Unknown]
  - Product container issue [Unknown]
  - Liquid product physical issue [Unknown]

NARRATIVE: CASE EVENT DATE: 20220101
